FAERS Safety Report 17194090 (Version 1)
Quarter: 2019Q4

REPORT INFORMATION
  Report Type: Spontaneous
  Country: US (occurrence: US)
  Receive Date: 20191224
  Receipt Date: 20191224
  Transmission Date: 20200122
  Serious: Yes (Hospitalization)
  Sender: FDA-Public Use
  Company Number: US-ANIPHARMA-2019-US-023245

PATIENT
  Age: 3 Year
  Sex: Male

DRUGS (1)
  1. OXYCODONE (NON-SPECIFIC) [Suspect]
     Active Substance: OXYCODONE
     Indication: PRODUCT USED FOR UNKNOWN INDICATION
     Route: 048

REACTIONS (5)
  - Blindness [Unknown]
  - Multiple organ dysfunction syndrome [Unknown]
  - Toxic leukoencephalopathy [Unknown]
  - Encephalitis [Unknown]
  - Accidental exposure to product [Unknown]
